FAERS Safety Report 4863761-3 (Version None)
Quarter: 2005Q4

REPORT INFORMATION
  Report Type: 
  Country: None (occurrence: None)
  Receive Date: 20051222
  Receipt Date: 20050803
  Transmission Date: 20060501
  Serious: No
  Sender: FDA-Public Use
  Company Number: US-GLAXOSMITHKLINE-A0568825A

PATIENT
  Age: 53 Year
  Sex: Male

DRUGS (2)
  1. FLONASE [Suspect]
     Indication: SINUSITIS
     Dosage: 2PUFF PER DAY
     Route: 045
     Dates: start: 20050630, end: 20050711
  2. ASPIRIN [Concomitant]

REACTIONS (4)
  - MUSCULOSKELETAL DISCOMFORT [None]
  - PRURITUS [None]
  - RASH [None]
  - RASH MACULAR [None]
